FAERS Safety Report 6585134-8 (Version None)
Quarter: 2010Q1

REPORT INFORMATION
  Report Type: 
  Country: None (occurrence: None)
  Receive Date: 20100217
  Receipt Date: 20100204
  Transmission Date: 20100710
  Serious: Yes (Other)
  Sender: FDA-Public Use
  Company Number: US-ROCHE-684134

PATIENT
  Sex: Male
  Weight: 83.3 kg

DRUGS (8)
  1. PEG-INTERFERON ALFA 2A (RO 25-8310) [Suspect]
     Dosage: LAST DOSE PRIOR TO SAE 25 JANUARY 2010
     Route: 058
     Dates: start: 20091021
  2. RO 5190591 (ITMN-191) [Suspect]
     Route: 048
     Dates: start: 20091021, end: 20100111
  3. RIBAVIRIN [Suspect]
     Dosage: LAST DOSE PRIOR TO SAE 29 JANUARY 2010.
     Route: 048
     Dates: start: 20091021
  4. MULTI-VITAMIN [Concomitant]
     Dosage: TOTAL DAILY DOSE 1 TAB
     Dates: start: 20070101
  5. ONDANSETRON [Concomitant]
     Dosage: TOTAL DAILY DOSE 4 MG PRN.
     Dates: start: 20090917
  6. ACETAMINOPHEN [Concomitant]
     Dosage: TOTAL DAILY DOSE 625 MG PRN.
     Dates: start: 20091021
  7. TYLENOL PM [Concomitant]
     Dosage: 1 TAB PRN
     Dates: start: 20091021
  8. FOLIC ACID [Concomitant]
     Dates: start: 20091028

REACTIONS (1)
  - BUNDLE BRANCH BLOCK LEFT [None]
